FAERS Safety Report 17962281 (Version 1)
Quarter: 2020Q2

REPORT INFORMATION
  Report Type: Spontaneous
  Country: US (occurrence: US)
  Receive Date: 20200629
  Receipt Date: 20200629
  Transmission Date: 20200714
  Serious: Yes (Other)
  Sender: FDA-Public Use
  Company Number: None

PATIENT
  Age: 57 Year
  Sex: Female
  Weight: 81 kg

DRUGS (4)
  1. CLONIDINE TRANSDERMAL SYSTEM USP 0.1 MG/24 HR WEEKLY [Suspect]
     Active Substance: CLONIDINE
     Indication: HYPERTENSION
     Dosage: ?          QUANTITY:1 PATCH(ES);OTHER FREQUENCY:24HR WEEKLY;?
     Route: 061
  2. TENORMIN [Concomitant]
     Active Substance: ATENOLOL
  3. CLONIDINE TRANSDERMAL SYSTEM [Concomitant]
     Active Substance: CLONIDINE
  4. BENADRYL [Concomitant]
     Active Substance: DIPHENHYDRAMINE HYDROCHLORIDE

REACTIONS (3)
  - Application site scar [None]
  - Application site dermatitis [None]
  - Application site inflammation [None]

NARRATIVE: CASE EVENT DATE: 20200530
